FAERS Safety Report 14109913 (Version 1)
Quarter: 2017Q4

REPORT INFORMATION
  Report Type: Spontaneous
  Country: US (occurrence: US)
  Receive Date: 20171020
  Receipt Date: 20171020
  Transmission Date: 20180321
  Serious: No
  Sender: FDA-Public Use
  Company Number: US-TEVA-744310ACC

PATIENT
  Age: 30 Year
  Sex: Female
  Weight: 102.15 kg

DRUGS (1)
  1. EQUATE MICONAZOLE [Suspect]
     Active Substance: MICONAZOLE
     Dates: start: 20170125, end: 20170129

REACTIONS (2)
  - Drug ineffective [Unknown]
  - Burning sensation [None]

NARRATIVE: CASE EVENT DATE: 20170201
